FAERS Safety Report 26183036 (Version 1)
Quarter: 2025Q4

REPORT INFORMATION
  Report Type: Spontaneous
  Country: US (occurrence: US)
  Receive Date: 20251221
  Receipt Date: 20251221
  Transmission Date: 20260119
  Serious: No
  Sender: ACCORD
  Company Number: US-Accord-510431

PATIENT
  Age: 41 Year
  Sex: Male
  Weight: 61.1 kg

DRUGS (2)
  1. UDENYCA [Suspect]
     Active Substance: PEGFILGRASTIM-CBQV
     Indication: Rectal cancer
     Dosage: STRENGTH: 6MG/0.6ML
     Route: 058
     Dates: start: 20251016
  2. UDENYCA [Suspect]
     Active Substance: PEGFILGRASTIM-CBQV
     Indication: Rectal cancer
     Dosage: STRENGTH: 6MG/0.6ML
     Route: 058
     Dates: start: 20251016

REACTIONS (2)
  - Wrong technique in device usage process [Unknown]
  - Wrong technique in device usage process [Unknown]

NARRATIVE: CASE EVENT DATE: 20251016
